FAERS Safety Report 4484214-0 (Version None)
Quarter: 2004Q4

REPORT INFORMATION
  Report Type: 
  Country: None (occurrence: None)
  Receive Date: 20041025
  Receipt Date: 20041018
  Transmission Date: 20050328
  Serious: Yes (Hospitalization)
  Sender: FDA-Public Use
  Company Number: PHRM2004FR03143

PATIENT
  Age: 45 Year
  Sex: Male

DRUGS (1)
  1. VOLTAREN [Suspect]
     Dosage: 1 DF, ONCE/SINGLE
     Route: 030
     Dates: start: 20040824, end: 20040824

REACTIONS (9)
  - AMNESIA [None]
  - ANAPHYLACTOID REACTION [None]
  - BLOOD PRESSURE DECREASED [None]
  - CYANOSIS [None]
  - PRURITUS GENERALISED [None]
  - RESPIRATORY DISTRESS [None]
  - TACHYCARDIA [None]
  - TONIC CONVULSION [None]
  - VISUAL DISTURBANCE [None]
